FAERS Safety Report 9869500 (Version 1)
Quarter: 2014Q1

REPORT INFORMATION
  Report Type: Spontaneous
  Country: FR (occurrence: None)
  Receive Date: 20140131
  Receipt Date: 20140131
  Transmission Date: 20141002
  Serious: Yes (Hospitalization)
  Sender: FDA-Public Use
  Company Number: 2147781

PATIENT
  Age: 71 Year
  Sex: Female

DRUGS (6)
  1. PAMIDRONIC ACID [Suspect]
     Route: 042
     Dates: start: 20131025, end: 20131025
  2. DEXAMETHASONE [Suspect]
  3. PAMIDRONATE SODIUM [Concomitant]
  4. NEUROTRONIN [Concomitant]
  5. NOVORAPID [Concomitant]
  6. MORPHINE [Concomitant]

REACTIONS (1)
  - Sinus bradycardia [None]
